FAERS Safety Report 4506008-X (Version None)
Quarter: 2004Q4

REPORT INFORMATION
  Report Type: 
  Country: None (occurrence: None)
  Receive Date: 20041025
  Receipt Date: 20040315
  Transmission Date: 20050328
  Serious: Yes (Other)
  Sender: FDA-Public Use
  Company Number: US-JNJFOC-20030905780

PATIENT
  Age: 56 Year
  Sex: Female
  Weight: 70.3075 kg

DRUGS (4)
  1. REMICADE [Suspect]
     Dosage: 400 MG, 1 IN 1 DAY, INTRAVENOUS; 500 MG, INTRAVENOUS
     Route: 042
     Dates: start: 20030828, end: 20030828
  2. REMICADE [Suspect]
     Dosage: 400 MG, 1 IN 1 DAY, INTRAVENOUS; 500 MG, INTRAVENOUS
     Route: 042
     Dates: start: 20030103
  3. METHOTREXATE [Concomitant]
  4. PREDNISONE [Concomitant]

REACTIONS (7)
  - ARTHRALGIA [None]
  - BREAST CANCER IN SITU [None]
  - DIFFICULTY IN WALKING [None]
  - MYALGIA [None]
  - OEDEMA PERIPHERAL [None]
  - PAIN IN EXTREMITY [None]
  - PHARYNGITIS [None]
